FAERS Safety Report 24839735 (Version 2)
Quarter: 2025Q1

REPORT INFORMATION
  Report Type: Spontaneous
  Country: DE (occurrence: DE)
  Receive Date: 20250114
  Receipt Date: 20250317
  Transmission Date: 20250408
  Serious: Yes (Hospitalization, Other)
  Sender: ROCHE
  Company Number: None

PATIENT
  Sex: Female
  Weight: 77 kg

DRUGS (13)
  1. AVASTIN [Suspect]
     Active Substance: BEVACIZUMAB
     Indication: Ovarian cancer
     Route: 065
     Dates: start: 20240618
  2. AVASTIN [Suspect]
     Active Substance: BEVACIZUMAB
     Indication: Endometrial cancer
  3. NIRAPARIB [Suspect]
     Active Substance: NIRAPARIB
     Indication: Ovarian cancer
     Dosage: 200 MG, QD
     Route: 065
     Dates: start: 20241011
  4. NIRAPARIB [Suspect]
     Active Substance: NIRAPARIB
     Indication: Endometrial cancer
     Route: 065
     Dates: start: 20241120
  5. NIRAPARIB [Suspect]
     Active Substance: NIRAPARIB
     Route: 065
     Dates: start: 20250101, end: 20250210
  6. TINZAPARIN SODIUM [Concomitant]
     Active Substance: TINZAPARIN SODIUM
     Indication: Product used for unknown indication
     Dates: start: 20240314, end: 20240510
  7. DEXAMETHASONE [Concomitant]
     Active Substance: DEXAMETHASONE
     Indication: Product used for unknown indication
     Dates: start: 20240416, end: 20240801
  8. URSODIOL [Concomitant]
     Active Substance: URSODIOL
     Indication: Product used for unknown indication
     Route: 048
     Dates: start: 20241106
  9. BISOPROLOL [Concomitant]
     Active Substance: BISOPROLOL
     Indication: Product used for unknown indication
     Route: 048
     Dates: start: 20241106, end: 20241213
  10. BISOPROLOL [Concomitant]
     Active Substance: BISOPROLOL
     Route: 048
     Dates: start: 20241214
  11. Amlodipine ratiopharm [Concomitant]
     Indication: Product used for unknown indication
     Route: 048
     Dates: start: 20241214
  12. MAGNESIUM VERLA [MAGNESIUM] [Concomitant]
  13. NOVALGINA [Concomitant]
     Active Substance: ACETAMINOPHEN\CAFFEINE

REACTIONS (3)
  - Thrombocytopenia [Recovered/Resolved]
  - Off label use [Unknown]
  - Abdominal pain lower [Recovered/Resolved]

NARRATIVE: CASE EVENT DATE: 20241106
